FAERS Safety Report 19051498 (Version 1)
Quarter: 2021Q1

REPORT INFORMATION
  Report Type: Spontaneous
  Country: US (occurrence: US)
  Receive Date: 20210324
  Receipt Date: 20210324
  Transmission Date: 20210420
  Serious: Yes (Death)
  Sender: FDA-Public Use
  Company Number: None

PATIENT
  Age: 72 Year
  Sex: Male

DRUGS (1)
  1. EPCLUSA [Suspect]
     Active Substance: SOFOSBUVIR\VELPATASVIR
     Indication: HEPATITIS B
     Dosage: ?          OTHER DOSE:400?100MG;?
     Route: 048
     Dates: start: 20201228, end: 20210310

REACTIONS (1)
  - Death [None]

NARRATIVE: CASE EVENT DATE: 20210310
